FAERS Safety Report 8200687 (Version 3)
Quarter: 2013Q2

REPORT INFORMATION
  Report Type: Spontaneous
  Country: US (occurrence: US)
  Receive Date: 20111026
  Receipt Date: 20130404
  Transmission Date: 20140414
  Serious: Yes (Hospitalization, Other)
  Sender: FDA-Public Use
  Company Number: US-ASTRAZENECA-2011SE62709

PATIENT
  Age: 61 Year
  Sex: Male

DRUGS (5)
  1. NEXIUM [Suspect]
     Route: 048
  2. NEXIUM [Suspect]
     Dosage: GENERIC
     Route: 048
  3. TOPROL XL [Suspect]
     Route: 048
  4. TOPROL XL [Suspect]
     Dosage: GENERIC
     Route: 048
  5. NEXIUM IV [Suspect]
     Route: 042

REACTIONS (6)
  - Gastrointestinal ulcer haemorrhage [Unknown]
  - Haemorrhage [Unknown]
  - Rectal haemorrhage [Unknown]
  - Diabetes mellitus [Unknown]
  - Adverse event [Unknown]
  - Drug dose omission [Unknown]
